FAERS Safety Report 12819036 (Version 1)
Quarter: 2016Q4

REPORT INFORMATION
  Report Type: Spontaneous
  Country: RU (occurrence: RU)
  Receive Date: 20161006
  Receipt Date: 20161006
  Transmission Date: 20170207
  Serious: Yes (Disabling, Other)
  Sender: FDA-Public Use
  Company Number: RU-ROCHE-1837390

PATIENT
  Age: 61 Year
  Sex: Male

DRUGS (1)
  1. AVASTIN [Suspect]
     Active Substance: BEVACIZUMAB
     Indication: RETINAL DETACHMENT
     Route: 050

REACTIONS (6)
  - Eye irritation [Recovering/Resolving]
  - Suspected transmission of an infectious agent via product [Unknown]
  - Off label use [Unknown]
  - Eye pain [Recovering/Resolving]
  - Eye infection [Unknown]
  - Blindness [Recovering/Resolving]
